FAERS Safety Report 15284558 (Version 1)
Quarter: 2018Q3

REPORT INFORMATION
  Report Type: Report from Study
  Country: IN (occurrence: IN)
  Receive Date: 20180816
  Receipt Date: 20180816
  Transmission Date: 20181010
  Serious: Yes (Death)
  Sender: FDA-Public Use
  Company Number: PHHY2018IN072008

PATIENT
  Age: 26 Year
  Sex: Male

DRUGS (1)
  1. TASIGNA [Suspect]
     Active Substance: NILOTINIB
     Indication: CHRONIC MYELOID LEUKAEMIA
     Dosage: 400 MG, BID
     Route: 048
     Dates: start: 20180308, end: 20180720

REACTIONS (6)
  - Platelet count decreased [Fatal]
  - Emotional distress [Fatal]
  - Haemoglobin decreased [Fatal]
  - Cytogenetic analysis abnormal [Fatal]
  - White blood cell count increased [Fatal]
  - Red cell distribution width increased [Fatal]

NARRATIVE: CASE EVENT DATE: 20180210
